FAERS Safety Report 18819115 (Version 4)
Quarter: 2021Q2

REPORT INFORMATION
  Report Type: Spontaneous
  Country: US (occurrence: US)
  Receive Date: 20210202
  Receipt Date: 20210604
  Transmission Date: 20210717
  Serious: Yes (Other)
  Sender: FDA-Public Use
  Company Number: US-GILEAD-2021-0514077

PATIENT
  Age: 63 Year
  Sex: Female

DRUGS (2)
  1. BIKTARVY [Concomitant]
     Active Substance: BICTEGRAVIR SODIUM\EMTRICITABINE\TENOFOVIR ALAFENAMIDE FUMARATE
  2. TRUVADA [Suspect]
     Active Substance: EMTRICITABINE\TENOFOVIR DISOPROXIL FUMARATE
     Indication: HIV INFECTION
     Dosage: UNK
     Route: 048
     Dates: start: 2004, end: 201910

REACTIONS (9)
  - Multiple fractures [Unknown]
  - Osteonecrosis [Unknown]
  - Hip fracture [Not Recovered/Not Resolved]
  - Device failure [Unknown]
  - Bone loss [Unknown]
  - Bone density decreased [Not Recovered/Not Resolved]
  - Bone disorder [Unknown]
  - Osteopenia [Not Recovered/Not Resolved]
  - Procedural failure [Recovered/Resolved]

NARRATIVE: CASE EVENT DATE: 20150423
